FAERS Safety Report 25727817 (Version 1)
Quarter: 2025Q3

REPORT INFORMATION
  Report Type: Spontaneous
  Country: US (occurrence: None)
  Receive Date: 20250826
  Receipt Date: 20250826
  Transmission Date: 20251020
  Serious: Yes (Other)
  Sender: FDA-CTU
  Company Number: None

PATIENT
  Age: 43 Year
  Sex: Female
  Weight: 72 kg

DRUGS (4)
  1. NITROFURANTOIN MONOHYDRATE MACROCRYSTALS [Suspect]
     Active Substance: NITROFURANTOIN\NITROFURANTOIN MONOHYDRATE
     Indication: Urinary tract infection
     Dosage: OTHER QUANTITY : 14 CAPSULE(S);?FREQUENCY : TWICE A DAY;?
     Route: 048
     Dates: start: 20250824, end: 20250826
  2. ESTRADIOL [Concomitant]
     Active Substance: ESTRADIOL
  3. PROGESTERONE [Concomitant]
     Active Substance: PROGESTERONE
  4. CRANBERRY [Concomitant]
     Active Substance: CRANBERRY

REACTIONS (10)
  - Urticaria [None]
  - Abdominal discomfort [None]
  - Nausea [None]
  - Body temperature fluctuation [None]
  - Myalgia [None]
  - Headache [None]
  - Hyperhidrosis [None]
  - Paraesthesia [None]
  - Chest discomfort [None]
  - Impaired work ability [None]

NARRATIVE: CASE EVENT DATE: 20250825
